FAERS Safety Report 19717194 (Version 1)
Quarter: 2021Q3

REPORT INFORMATION
  Report Type: Spontaneous
  Country: FR (occurrence: FR)
  Receive Date: 20210818
  Receipt Date: 20210818
  Transmission Date: 20211014
  Serious: Yes (Hospitalization)
  Sender: FDA-Public Use
  Company Number: FR-009507513-2108FRA002807

PATIENT
  Age: 42 Year
  Sex: Male
  Weight: 110 kg

DRUGS (2)
  1. LANSOPRAZOLE ALMUS [Suspect]
     Active Substance: LANSOPRAZOLE
     Indication: GASTROOESOPHAGEAL REFLUX DISEASE
     Dosage: 30 MILLIGRAM, QD, GASTRO?RESISTANT CAPSULE
     Route: 048
     Dates: end: 20210628
  2. TIENAM 500MG/500MG, POUDRE POUR PERFUSION [Suspect]
     Active Substance: CILASTATIN SODIUM\IMIPENEM
     Indication: URINARY TRACT INFECTION
     Dosage: UNK, POWDER FOR INFUSION
     Route: 041
     Dates: start: 20210621, end: 20210628

REACTIONS (2)
  - Eosinophilia [Recovering/Resolving]
  - Erythema [Recovering/Resolving]

NARRATIVE: CASE EVENT DATE: 20210623
